FAERS Safety Report 12546356 (Version 1)
Quarter: 2016Q3

REPORT INFORMATION
  Report Type: Spontaneous
  Country: US (occurrence: US)
  Receive Date: 20160711
  Receipt Date: 20160711
  Transmission Date: 20161109
  Serious: Yes (Hospitalization)
  Sender: FDA-Public Use
  Company Number: US-BAYER-2016-130435

PATIENT
  Age: 27 Year
  Sex: Female

DRUGS (1)
  1. CALCIUM CARBONATE. [Suspect]
     Active Substance: CALCIUM CARBONATE
     Indication: HYPOCALCAEMIA
     Dosage: 1200 MG, TID

REACTIONS (2)
  - Drug ineffective [Recovered/Resolved]
  - Maternal exposure during pregnancy [None]
